FAERS Safety Report 4519371-0 (Version None)
Quarter: 2004Q4

REPORT INFORMATION
  Report Type: 
  Country: None (occurrence: None)
  Receive Date: 20041202
  Receipt Date: 20041123
  Transmission Date: 20050328
  Serious: Yes (Other)
  Sender: FDA-Public Use
  Company Number: 2004S1000261

PATIENT
  Age: 40 Year
  Sex: Male
  Weight: 68 kg

DRUGS (21)
  1. CUBICIN [Suspect]
     Indication: OSTEOMYELITIS
     Dosage: 300 MG; Q24H; IV
     Route: 042
     Dates: start: 20040925
  2. CUBICIN [Suspect]
     Indication: STAPHYLOCOCCAL INFECTION
     Dosage: 300 MG; Q24H; IV
     Route: 042
     Dates: start: 20040925
  3. VANCOMYCIN [Concomitant]
  4. ULTRASE MT20 [Concomitant]
  5. KALETRA [Concomitant]
  6. ATENOLOL [Concomitant]
  7. KLONOPIN [Concomitant]
  8. TENOFIVIR [Concomitant]
  9. DIDANOSINE [Concomitant]
  10. TRAZODONE HCL [Concomitant]
  11. FAMICICLOVIR [Concomitant]
  12. DIFLUCAN [Concomitant]
  13. SYNTHROID [Concomitant]
  14. ZYPREXA [Concomitant]
  15. DILANTIN [Concomitant]
  16. NEURONTIN [Concomitant]
  17. DOCUSATE [Concomitant]
  18. DRONABINOL [Concomitant]
  19. MOXIFLOXACIN [Concomitant]
  20. AVANDIA [Concomitant]
  21. SEPTRA DS [Concomitant]

REACTIONS (6)
  - ALANINE AMINOTRANSFERASE INCREASED [None]
  - ASPARTATE AMINOTRANSFERASE INCREASED [None]
  - BLOOD ALKALINE PHOSPHATASE INCREASED [None]
  - BLOOD CREATINE PHOSPHOKINASE INCREASED [None]
  - BLOOD CREATININE INCREASED [None]
  - DIABETES MELLITUS [None]
